FAERS Safety Report 15678984 (Version 1)
Quarter: 2018Q4

REPORT INFORMATION
  Report Type: Spontaneous
  Country: FR (occurrence: FR)
  Receive Date: 20181202
  Receipt Date: 20181202
  Transmission Date: 20190205
  Serious: Yes (Hospitalization, Other)
  Sender: FDA-Public Use
  Company Number: FR-BRISTOL-MYERS SQUIBB COMPANY-BMS-2018-111584

PATIENT
  Age: 60 Year
  Sex: Female
  Weight: 58 kg

DRUGS (2)
  1. OPDIVO [Suspect]
     Active Substance: NIVOLUMAB
     Indication: BRONCHIAL CARCINOMA
     Dosage: 240 MG, 15 DAYS
     Route: 041
     Dates: start: 20180206, end: 20180814
  2. YERVOY [Suspect]
     Active Substance: IPILIMUMAB
     Indication: BRONCHIAL CARCINOMA
     Dosage: 50 MG, 1 MONTH
     Route: 041
     Dates: start: 20180206, end: 20180731

REACTIONS (2)
  - Dermatomyositis [Recovering/Resolving]
  - Product used for unknown indication [Unknown]

NARRATIVE: CASE EVENT DATE: 201804
